FAERS Safety Report 21812002 (Version 1)
Quarter: 2023Q1

REPORT INFORMATION
  Report Type: Report from Study
  Country: PT (occurrence: None)
  Receive Date: 20230103
  Receipt Date: 20230103
  Transmission Date: 20230418
  Serious: Yes (Other)
  Sender: FDA-Public Use
  Company Number: PT-Merck Healthcare KGaA-9358122

PATIENT
  Sex: Female
  Weight: 65 kg

DRUGS (2)
  1. TEPOTINIB [Suspect]
     Active Substance: TEPOTINIB
     Indication: Lung adenocarcinoma
     Route: 048
     Dates: start: 20220303
  2. TEPOTINIB [Suspect]
     Active Substance: TEPOTINIB
     Route: 048
     Dates: start: 20220719

REACTIONS (2)
  - Hepatotoxicity [Unknown]
  - Creatinine renal clearance decreased [Not Recovered/Not Resolved]

NARRATIVE: CASE EVENT DATE: 20220803
